FAERS Safety Report 8620485-4 (Version None)
Quarter: 2012Q3

REPORT INFORMATION
  Report Type: 
  Country: None (occurrence: None)
  Receive Date: 20120824
  Receipt Date: 20120807
  Transmission Date: 20120928
  Serious: Yes (Hospitalization)
  Sender: FDA-Public Use
  Company Number: JP-009507513-2012SP028299

PATIENT

DRUGS (21)
  1. PEG-INTRON [Suspect]
     Dosage: UNK UNK, UNKNOWN
     Route: 058
     Dates: end: 20120416
  2. REBETOL [Suspect]
     Dosage: 200 MG, QD
     Route: 048
     Dates: start: 20120412, end: 20120416
  3. DEXTROSE (+) ELECTROLYTES (UNSPECIFIED) (+) SODIUM LACTATE [Concomitant]
     Dosage: DRUG FORM: UNKNOWN
     Route: 065
     Dates: start: 20120412, end: 20120414
  4. CYANOCOBALAMIN (+) PYRIDOXINE HYDROCHLORIDE (+) THIAMINE DISULFIDE [Concomitant]
     Dosage: 1 V/ DAY
     Route: 042
     Dates: start: 20120412, end: 20120414
  5. URSO 250 [Concomitant]
     Indication: HEPATITIS C
     Dosage: 600 MG, QD
     Route: 048
     Dates: start: 20120510
  6. TELAVIC [Suspect]
     Dosage: 1500 MG, QD
     Route: 048
     Dates: start: 20120414, end: 20120416
  7. AMINO ACIDS (UNSPECIFIED) [Concomitant]
     Dosage: 500 ML, QD
     Route: 042
     Dates: start: 20120322, end: 20120327
  8. FLADD [Concomitant]
     Dosage: 20 MG, QD
     Route: 042
     Dates: start: 20120412, end: 20120414
  9. TELAVIC [Suspect]
     Indication: HEPATITIS C
     Dosage: 2250 MG, QD
     Route: 048
     Dates: start: 20120314, end: 20120412
  10. AMLODIPINE BESYLATE [Concomitant]
     Indication: HYPERTENSION
     Dosage: 5 MG, QD
     Route: 048
  11. SELBEX [Concomitant]
     Indication: PROPHYLAXIS
     Dosage: AS NEEDED 50 MILLIGRAM PER DAY, STOP DATE UPDATED TO 14MAR2012(UPDATE 28JUN2012)
     Route: 048
     Dates: start: 20120314, end: 20120314
  12. MYSER (CYCLOSERINE) [Concomitant]
     Dosage: Q.S PER DAY, AS NEEDED.   (UPDATE 28JUN2012): STOP DATE: 28MAR2012
     Route: 061
     Dates: start: 20120317, end: 20120328
  13. ASCORBIC ACID [Concomitant]
     Dosage: 100 MG, QD
     Route: 042
     Dates: start: 20120412, end: 20120414
  14. OLOPATADINE HCL [Concomitant]
     Dosage: (UPDATE 28JUN2012): STOP DATE-26MAR2012
     Route: 048
     Dates: start: 20120317, end: 20120326
  15. REBETOL [Suspect]
     Indication: HEPATITIS C
     Dosage: 600 MG, QD
     Route: 048
     Dates: start: 20120314, end: 20120411
  16. NEOMALLERMIN TR [Concomitant]
     Indication: ERYTHEMA
     Dosage: (UPDATE 28JUN2012):26MAR2012
     Route: 048
     Dates: start: 20120318, end: 20120326
  17. PEG-INTRON [Suspect]
     Dosage: 1.5 ?G/KG, QW
     Route: 058
     Dates: start: 20120314, end: 20120413
  18. TELAVIC [Suspect]
     Dosage: 1750 MG, QD
     Route: 048
     Dates: start: 20120413, end: 20120413
  19. MARZULENE ES [Concomitant]
     Indication: DUODENAL ULCER
     Dosage: 2 DF, QD
     Route: 048
  20. LANSOPRAZOLE [Concomitant]
     Indication: DUODENAL ULCER
     Dosage: 15 MG, QD
  21. ASCORBIC ACID (+) VITAMIN B COMPLEX [Concomitant]
     Dosage: DRUG FORM: UNKNOWN
     Route: 042
     Dates: start: 20120326, end: 20120327

REACTIONS (1)
  - VOMITING [None]
